FAERS Safety Report 26101757 (Version 1)
Quarter: 2025Q4

REPORT INFORMATION
  Report Type: Spontaneous
  Country: CN (occurrence: CN)
  Receive Date: 20251128
  Receipt Date: 20251128
  Transmission Date: 20260119
  Serious: Yes (Hospitalization, Other)
  Sender: QILU PHARMACEUTICAL (HAINAN) CO., LTD.
  Company Number: CN-QILU PHARMACEUTICAL (HAINAN) CO.  LTD.-QLH-000378-2025

PATIENT
  Age: 70 Year
  Sex: Male

DRUGS (22)
  1. OXALIPLATIN [Suspect]
     Active Substance: OXALIPLATIN
     Indication: Colorectal cancer
     Dosage: UNK, 8 CYCLES
     Route: 065
     Dates: start: 20211222
  2. OXALIPLATIN [Suspect]
     Active Substance: OXALIPLATIN
     Dosage: 150 MG STAT
     Route: 042
     Dates: start: 20220603, end: 2022
  3. FLUOROURACIL [Suspect]
     Active Substance: FLUOROURACIL
     Indication: Colorectal cancer
     Dosage: 8 CYCLES
     Route: 065
     Dates: start: 20211222
  4. FLUOROURACIL [Suspect]
     Active Substance: FLUOROURACIL
     Dosage: 0.75 G STAT CONTINUOUS INTRAVENOUS INFUSION FOR 46H
     Route: 042
     Dates: start: 20220603, end: 2022
  5. FLUOROURACIL [Suspect]
     Active Substance: FLUOROURACIL
     Dosage: 4 G STAT CONTINUOUS INTRAVENOUS INFUSION FOR 46H
     Route: 042
     Dates: start: 20220603, end: 2022
  6. FLUOROURACIL [Suspect]
     Active Substance: FLUOROURACIL
     Dosage: 0.75 G STAT CONTINUOUS INTRAVENOUS INFUSION FOR 46H
     Route: 042
     Dates: start: 20220604, end: 2022
  7. FLUOROURACIL [Suspect]
     Active Substance: FLUOROURACIL
     Dosage: 4 G STAT CONTINUOUS INTRAVENOUS INFUSION FOR 46H
     Route: 042
     Dates: start: 20220604, end: 2022
  8. LEUCOVORIN CALCIUM [Suspect]
     Active Substance: LEUCOVORIN CALCIUM
     Indication: Colorectal cancer
     Dosage: 8 CYCLES
     Route: 065
     Dates: start: 20211222
  9. LEUCOVORIN CALCIUM [Suspect]
     Active Substance: LEUCOVORIN CALCIUM
     Dosage: 700 MG ST
     Route: 042
     Dates: start: 20220603, end: 2022
  10. BEVACIZUMAB [Suspect]
     Active Substance: BEVACIZUMAB
     Indication: Colorectal cancer
     Dosage: UNK
     Route: 065
  11. BEVACIZUMAB [Suspect]
     Active Substance: BEVACIZUMAB
     Dosage: 150 MG ST
     Route: 042
     Dates: start: 20220604, end: 2022
  12. OMEPRAZOLE [Suspect]
     Active Substance: OMEPRAZOLE
     Indication: Product used for unknown indication
     Dosage: 40 MG ONCE DAILY
     Route: 042
     Dates: start: 20220603
  13. OMEPRAZOLE [Suspect]
     Active Substance: OMEPRAZOLE
     Dosage: 40 MG ONCE DAILY
     Route: 042
     Dates: start: 20220604
  14. VITAMIN C [Concomitant]
     Active Substance: ASCORBIC ACID
     Indication: Product used for unknown indication
     Dosage: 1 GRAM ONCE DAILY (QD)
     Route: 042
     Dates: start: 20220603
  15. VITAMIN C [Concomitant]
     Active Substance: ASCORBIC ACID
     Dosage: 1 GRAM ONCE DAILY (QD)
     Route: 042
     Dates: start: 20220604
  16. VITAMIN B6 [Concomitant]
     Active Substance: PYRIDOXINE HYDROCHLORIDE
     Indication: Product used for unknown indication
     Dosage: 0.2 GRAM ONCE DAILY
     Route: 042
     Dates: start: 20220603
  17. VITAMIN B6 [Concomitant]
     Active Substance: PYRIDOXINE HYDROCHLORIDE
     Dosage: 0.2 GRAM ONCE DAILY
     Route: 042
     Dates: start: 20220604
  18. GRANISETRON [Concomitant]
     Active Substance: GRANISETRON
     Indication: Product used for unknown indication
     Dosage: 3 MG ONCE DAILY (QD)
     Route: 042
     Dates: start: 20220603
  19. GRANISETRON [Concomitant]
     Active Substance: GRANISETRON
     Dosage: 3 MG ONCE DAILY (QD)
     Route: 042
     Dates: start: 20220604
  20. ESOMEPRAZOLE [Concomitant]
     Active Substance: ESOMEPRAZOLE
     Indication: Product used for unknown indication
     Dosage: 20 MG ONCE DAILY QD PO
     Route: 048
     Dates: start: 20220610
  21. ESOMEPRAZOLE [Concomitant]
     Active Substance: ESOMEPRAZOLE
     Dosage: 20 MG ONCE DAILY QD PO
     Route: 048
     Dates: start: 20220611
  22. METHYLPREDNISOLONE [Concomitant]
     Active Substance: METHYLPREDNISOLONE
     Indication: Product used for unknown indication
     Dosage: 40 MG
     Route: 042
     Dates: start: 20220603

REACTIONS (1)
  - Insulin autoimmune syndrome [Recovered/Resolved]

NARRATIVE: CASE EVENT DATE: 20220608
